FAERS Safety Report 9277088 (Version 1)
Quarter: 2013Q2

REPORT INFORMATION
  Report Type: Report from Study
  Country: NL (occurrence: NL)
  Receive Date: 20130507
  Receipt Date: 20130507
  Transmission Date: 20140414
  Serious: Yes (Other)
  Sender: FDA-Public Use
  Company Number: NL-B.I. PHARMACEUTICALS,INC./RIDGEFIELD-2013-NL-00334NL

PATIENT
  Sex: Female
  Weight: 78 kg

DRUGS (1)
  1. SIFROL RETARD [Suspect]
     Indication: RESTLESS LEGS SYNDROME
     Dosage: 1.5 MG
     Dates: start: 2010, end: 20130310

REACTIONS (3)
  - Pathological gambling [Not Recovered/Not Resolved]
  - Economic problem [Unknown]
  - Divorced [Unknown]
